FAERS Safety Report 10136687 (Version 1)
Quarter: 2014Q2

REPORT INFORMATION
  Report Type: Spontaneous
  Country: GB (occurrence: GB)
  Receive Date: 20140429
  Receipt Date: 20140429
  Transmission Date: 20141212
  Serious: Yes (Hospitalization, Other)
  Sender: FDA-Public Use
  Company Number: GB-JNJFOC-20140417163

PATIENT
  Age: 76 Year
  Sex: Male

DRUGS (17)
  1. INFLIXIMAB, RECOMBINANT [Suspect]
     Indication: COLITIS
     Route: 042
     Dates: start: 20131220
  2. INFLIXIMAB, RECOMBINANT [Suspect]
     Indication: COLITIS
     Route: 042
     Dates: start: 20131206
  3. YERVOY [Suspect]
     Indication: METASTATIC MALIGNANT MELANOMA
     Route: 042
     Dates: start: 20131018
  4. PARACETAMOL [Concomitant]
     Route: 065
  5. SIMVASTATIN [Concomitant]
     Route: 065
  6. ZOPICLONE [Concomitant]
     Route: 065
  7. RANITIDINE [Concomitant]
     Route: 065
  8. LOPERAMIDE [Concomitant]
     Route: 065
  9. CALCEOS [Concomitant]
     Route: 065
  10. QUININE [Concomitant]
     Route: 065
  11. CHOLECALCIFEROL [Concomitant]
     Route: 065
  12. PHOSPHATE-SANDOZ [Concomitant]
     Route: 065
  13. SODIUM BICARBONATE [Concomitant]
     Route: 065
  14. POTASSIUM BICARBONATE [Concomitant]
     Route: 065
  15. SANDO-K [Concomitant]
     Route: 065
  16. POTASSIUM CHLORIDE [Concomitant]
     Route: 065
  17. POTASSIUM BICARBONATE [Concomitant]
     Route: 065

REACTIONS (4)
  - Immune thrombocytopenic purpura [Not Recovered/Not Resolved]
  - Colitis [Recovering/Resolving]
  - Clostridium difficile colitis [Recovered/Resolved]
  - Rectal haemorrhage [Unknown]
